FAERS Safety Report 21828267 (Version 1)
Quarter: 2023Q1

REPORT INFORMATION
  Report Type: Spontaneous
  Country: CA (occurrence: CA)
  Receive Date: 20230106
  Receipt Date: 20230106
  Transmission Date: 20230417
  Serious: Yes (Hospitalization, Other)
  Sender: FDA-Public Use
  Company Number: CA-AUROBINDO-AUR-APL-2022-057461

PATIENT
  Age: 54 Year
  Sex: Male

DRUGS (1)
  1. METRONIDAZOLE [Suspect]
     Active Substance: METRONIDAZOLE
     Indication: Bronchiectasis
     Dosage: 60 GRAM
     Route: 048

REACTIONS (9)
  - Ataxia [Recovered/Resolved]
  - Cerebellar syndrome [Recovered/Resolved]
  - Dysmetria [Recovered/Resolved]
  - Dysarthria [Recovered/Resolved]
  - Gait disturbance [Recovered/Resolved]
  - Generalised tonic-clonic seizure [Recovered/Resolved]
  - Hyperintensity in brain deep nuclei [Recovered/Resolved]
  - Speech disorder [Recovered/Resolved]
  - Off label use [Recovered/Resolved]
